FAERS Safety Report 4744776-2 (Version None)
Quarter: 2005Q3

REPORT INFORMATION
  Report Type: 
  Country: None (occurrence: None)
  Receive Date: 20050812
  Receipt Date: 20050812
  Transmission Date: 20060218
  Serious: Yes (Other)
  Sender: FDA-Public Use
  Company Number: None

PATIENT
  Sex: Male
  Weight: 88 kg

DRUGS (11)
  1. CYCLOPHOSPHAMIDE [Suspect]
     Indication: ACUTE LYMPHOCYTIC LEUKAEMIA
     Dosage: SEE IMAGE
     Route: 042
     Dates: start: 20050729, end: 20050729
  2. ALLOPURINOL [Suspect]
     Dosage: SEE IMAGE
     Route: 048
     Dates: end: 20050810
  3. DAUNORUBICIN HCL [Suspect]
     Dosage: SEE IMAGE
     Route: 042
     Dates: end: 20050731
  4. VINCRISTINE [Suspect]
     Dosage: SEE IMAGE
     Route: 042
     Dates: end: 20050805
  5. DEXAMETHASONE [Suspect]
     Dosage: SEE IMAGE
     Route: 048
  6. ELSPAR [Suspect]
     Dosage: SEE IMAGE
     Route: 058
  7. ELSPAR [Suspect]
     Dosage: SEE IMAGE
     Route: 030
  8. G-CSF [Suspect]
     Dosage: SEE IMAGE
     Route: 058
  9. METHOTREXATE [Suspect]
     Dosage: SEE IMAGE
     Route: 037
  10. CYTARABINE [Suspect]
     Dosage: SEE IMAGE
     Route: 042
  11. COTRIMOXAZOLE DS [Suspect]
     Dosage: SEE IMAGE
     Route: 048

REACTIONS (4)
  - CATHETER SITE HAEMORRHAGE [None]
  - COAGULOPATHY [None]
  - DISSEMINATED INTRAVASCULAR COAGULATION [None]
  - TUMOUR LYSIS SYNDROME [None]
